FAERS Safety Report 9240701 (Version 1)
Quarter: 2013Q1

REPORT INFORMATION
  Report Type: Spontaneous
  Country: US (occurrence: None)
  Receive Date: 20121120
  Receipt Date: 20121120
  Transmission Date: 20140127
  Serious: No
  Sender: FDA-Public Use
  Company Number: 1000038113

PATIENT
  Age: 21 Year
  Sex: Female

DRUGS (5)
  1. VIIBRYD [Suspect]
     Indication: DEPRESSION
     Dates: start: 20120803, end: 20120809
  2. BENZTROPINE (BENZATROPINE MESILATE) [Concomitant]
  3. CLONIDINE (CLONIDINE) [Concomitant]
  4. DULERA (DULERA) [Concomitant]
  5. SINGULAIR [Concomitant]

REACTIONS (1)
  - Tremor [None]
